FAERS Safety Report 6638123-9 (Version None)
Quarter: 2010Q1

REPORT INFORMATION
  Report Type: 
  Country: None (occurrence: None)
  Receive Date: 20100315
  Receipt Date: 20100315
  Transmission Date: 20100710
  Serious: Yes (Hospitalization)
  Sender: FDA-Public Use
  Company Number: None

PATIENT
  Sex: Male
  Weight: 81.6 kg

DRUGS (1)
  1. DASATINIB [Suspect]
     Indication: POLYCYTHAEMIA VERA
     Dosage: 100 MG DAILY PO
     Route: 048
     Dates: start: 20090210

REACTIONS (1)
  - EPISTAXIS [None]
